FAERS Safety Report 6493553-3 (Version None)
Quarter: 2009Q4

REPORT INFORMATION
  Report Type: 
  Country: None (occurrence: None)
  Receive Date: 20091214
  Receipt Date: 20081211
  Transmission Date: 20100525
  Serious: Yes (Hospitalization)
  Sender: FDA-Public Use
  Company Number: JP-PFIZER INC-2008098901

PATIENT
  Age: 78 Year
  Sex: Male
  Weight: 47 kg

DRUGS (9)
  1. IRINOTECAN HCL [Suspect]
     Indication: COLORECTAL CANCER
     Dosage: 270 MG, 1X/DAY, EVERY 2 WEEKS
     Route: 042
     Dates: start: 20080526, end: 20081020
  2. *FOLINIC ACID [Suspect]
     Indication: COLORECTAL CANCER
     Dosage: 300 MG, 1X/DAY, EVERY 2 WEEKS
     Route: 042
     Dates: start: 20080526, end: 20081020
  3. FLUOROURACIL [Suspect]
     Indication: COLORECTAL CANCER
     Dosage: INFUSION 3600 MG, EVERY 2 WEEKS
     Route: 041
     Dates: start: 20080526, end: 20081022
  4. FLUOROURACIL [Suspect]
     Dosage: BOLUS 600 MG, 1X/DAY, EVERY 2 WEEKS
     Route: 040
     Dates: start: 20080526, end: 20080922
  5. SUNITINIB MALATE [Suspect]
     Indication: COLORECTAL CANCER
     Dosage: 37.5 MG, 1X/DAY
     Route: 048
     Dates: start: 20080526, end: 20081116
  6. BROTIZOLAM [Concomitant]
     Route: 048
     Dates: start: 20080508
  7. FAMOTIDINE [Concomitant]
     Route: 048
     Dates: start: 20080908
  8. MAGNESIUM OXIDE [Concomitant]
     Route: 048
     Dates: start: 20081020
  9. SENNOSIDE A+B [Concomitant]
     Route: 048
     Dates: start: 20081020

REACTIONS (3)
  - DECREASED APPETITE [None]
  - GASTRIC DILATATION [None]
  - VOMITING [None]
